FAERS Safety Report 4514254-4 (Version None)
Quarter: 2004Q4

REPORT INFORMATION
  Report Type: 
  Country: None (occurrence: None)
  Receive Date: 20041124
  Receipt Date: 20041105
  Transmission Date: 20050328
  Serious: Yes (Hospitalization, Disabling, Other)
  Sender: FDA-Public Use
  Company Number: DE_041014518

PATIENT
  Age: 61 Year
  Sex: Male
  Weight: 79 kg

DRUGS (5)
  1. GEMZAR [Suspect]
     Indication: PANCREATIC CARCINOMA
     Dosage: 1000 MG/M2
     Dates: start: 20041006
  2. FRAXIPARIN (HEPARIN-FRACTION, CALCIUM SALT) [Concomitant]
  3. ACETYLSALICYLIC ACID SRT [Concomitant]
  4. NAVOBAN (TROPISETRON HYDROCHLORIDE) [Concomitant]
  5. METOCLOPRAMIDE HYDROCHLORIDE [Concomitant]

REACTIONS (10)
  - COAGULOPATHY [None]
  - COORDINATION ABNORMAL [None]
  - DRUG INTERACTION [None]
  - FACIAL PARESIS [None]
  - FIBRIN D DIMER INCREASED [None]
  - INFARCTION [None]
  - ISCHAEMIA [None]
  - REVERSIBLE ISCHAEMIC NEUROLOGICAL DEFICIT [None]
  - SPEECH DISORDER [None]
  - VISUAL FIELD DEFECT [None]
